FAERS Safety Report 7023742-0 (Version None)
Quarter: 2010Q4

REPORT INFORMATION
  Report Type: 
  Country: None (occurrence: None)
  Receive Date: 20101001
  Receipt Date: 20100819
  Transmission Date: 20110411
  Serious: Yes (Hospitalization, Other)
  Sender: FDA-Public Use
  Company Number: US-BAYER-201014008NA

PATIENT
  Age: 26 Year
  Sex: Female
  Weight: 62 kg

DRUGS (8)
  1. YAZ [Suspect]
     Indication: PREMENSTRUAL SYNDROME
     Route: 048
     Dates: start: 20050101
  2. YAZ [Suspect]
     Route: 048
     Dates: start: 20080901, end: 20090901
  3. ZOLOFT [Concomitant]
  4. CLONAZEPAM [Concomitant]
  5. LAMICTAL [Concomitant]
  6. CYMBALTA [Concomitant]
  7. LORAZEPAM [Concomitant]
  8. MEDROXYPROGESTERONE [Concomitant]

REACTIONS (6)
  - ABDOMINAL PAIN [None]
  - CHOLECYSTITIS CHRONIC [None]
  - DIARRHOEA [None]
  - PANCREATITIS [None]
  - PREMENSTRUAL SYNDROME [None]
  - VOMITING [None]
